FAERS Safety Report 10739493 (Version 5)
Quarter: 2015Q2

REPORT INFORMATION
  Report Type: Spontaneous
  Country: US (occurrence: US)
  Receive Date: 20150126
  Receipt Date: 20150624
  Transmission Date: 20150821
  Serious: Yes (Hospitalization, Disabling, Other)
  Sender: FDA-Public Use
  Company Number: US-009507513-1108USA00971

PATIENT
  Sex: Female
  Weight: 68.27 kg

DRUGS (4)
  1. FOSAMAX [Suspect]
     Active Substance: ALENDRONATE SODIUM
     Indication: OSTEOPOROSIS
     Dosage: 10 MG, QD
     Route: 048
     Dates: start: 1995, end: 2010
  2. ALENDRONATE SODIUM. [Suspect]
     Active Substance: ALENDRONATE SODIUM
     Indication: OSTEOPENIA
  3. FOSAMAX [Suspect]
     Active Substance: ALENDRONATE SODIUM
     Indication: OSTEOPENIA
     Dosage: 70 MG, QW
     Route: 048
     Dates: start: 20030817, end: 201008
  4. ALENDRONATE SODIUM. [Suspect]
     Active Substance: ALENDRONATE SODIUM
     Indication: OSTEOPOROSIS
     Dosage: 70 MG, QW
     Route: 048
     Dates: start: 20080320, end: 20100802

REACTIONS (33)
  - Exostosis [Unknown]
  - Fall [Unknown]
  - Diarrhoea [Unknown]
  - Upper limb fracture [Not Recovered/Not Resolved]
  - Renal failure [Unknown]
  - Kyphosis [Unknown]
  - Rib fracture [Unknown]
  - Osteoarthritis [Not Recovered/Not Resolved]
  - Hand fracture [Unknown]
  - Fall [Unknown]
  - Syncope [Unknown]
  - Shoulder arthroplasty [Unknown]
  - Blood parathyroid hormone increased [Recovering/Resolving]
  - Back pain [Unknown]
  - Syncope [Unknown]
  - Osteoporosis [Not Recovered/Not Resolved]
  - Dehydration [Unknown]
  - Fall [Unknown]
  - Femur fracture [Unknown]
  - Blood cholesterol increased [Unknown]
  - Hand fracture [Unknown]
  - Contusion [Recovering/Resolving]
  - Cerumen impaction [Recovered/Resolved]
  - Intramedullary rod insertion [Unknown]
  - Anaemia postoperative [Unknown]
  - Vitamin D deficiency [Not Recovered/Not Resolved]
  - Wrist fracture [Unknown]
  - Spinal osteoarthritis [Unknown]
  - Facial bones fracture [Unknown]
  - Low turnover osteopathy [Not Recovered/Not Resolved]
  - Hyperparathyroidism primary [Unknown]
  - Rhinitis allergic [Unknown]
  - Dizziness [Unknown]

NARRATIVE: CASE EVENT DATE: 200102
